FAERS Safety Report 8358408-8 (Version None)
Quarter: 2012Q2

REPORT INFORMATION
  Report Type: 
  Country: None (occurrence: None)
  Receive Date: 20120514
  Receipt Date: 20120509
  Transmission Date: 20120825
  Serious: Yes (Other)
  Sender: FDA-Public Use
  Company Number: GB-BAYER-2012-045663

PATIENT
  Age: 17 Year
  Sex: Female

DRUGS (1)
  1. CLOTRIMAZOLE [Suspect]
     Dosage: 500 MG, UNK
     Route: 067
     Dates: start: 20120506

REACTIONS (2)
  - VAGINAL HAEMORRHAGE [None]
  - CANDIDIASIS [None]
